FAERS Safety Report 9650478 (Version 4)
Quarter: 2014Q1

REPORT INFORMATION
  Report Type: Report from Study
  Country: CA (occurrence: CA)
  Receive Date: 20131029
  Receipt Date: 20140224
  Transmission Date: 20141002
  Serious: Yes (Other)
  Sender: FDA-Public Use
  Company Number: CA-ROCHE-1172626

PATIENT
  Age: 67 Year
  Sex: Female
  Weight: 66 kg

DRUGS (12)
  1. ACTEMRA [Suspect]
     Indication: RHEUMATOID ARTHRITIS
     Route: 042
     Dates: start: 20121120
  2. ACTEMRA [Suspect]
     Route: 042
     Dates: start: 20121218
  3. ACTEMRA [Suspect]
     Route: 042
     Dates: start: 20131022
  4. ACTEMRA [Suspect]
     Route: 042
     Dates: start: 20131119
  5. ARAVA [Concomitant]
  6. PREDNISONE [Concomitant]
     Route: 065
  7. GLYBURIDE [Concomitant]
  8. ACTONEL [Concomitant]
  9. IBUPROFEN [Concomitant]
  10. FOLIC ACID [Concomitant]
  11. RABEPRAZOLE [Concomitant]
     Indication: GASTRIC DISORDER
  12. ASA [Concomitant]

REACTIONS (8)
  - Infusion related reaction [Recovered/Resolved]
  - Blood pressure increased [Recovering/Resolving]
  - Asthma [Recovering/Resolving]
  - Laryngitis [Recovered/Resolved]
  - Incorrect route of drug administration [Unknown]
  - Contusion [Not Recovered/Not Resolved]
  - Poor venous access [Unknown]
  - Urinary tract infection [Not Recovered/Not Resolved]
